FAERS Safety Report 4667022-7 (Version None)
Quarter: 2005Q2

REPORT INFORMATION
  Report Type: 
  Country: None (occurrence: None)
  Receive Date: 20050520
  Receipt Date: 20040409
  Transmission Date: 20051028
  Serious: Yes (Other)
  Sender: FDA-Public Use
  Company Number: PHEH2004US04090

PATIENT
  Age: 64 Year
  Sex: Female

DRUGS (9)
  1. AREDIA [Suspect]
     Dosage: 90MG OVER 1-2 HOURS
     Dates: start: 20020201, end: 20030702
  2. ANASTROZOLE [Concomitant]
     Dosage: 1 MG X 3 TREATMENTS
     Dates: start: 20011113, end: 20011115
  3. CAPECITABINE [Concomitant]
     Dosage: 6 MG X 6 TREATMENTS
     Dates: start: 20020212, end: 20020710
  4. EPOETIN ALFA [Concomitant]
     Dosage: 10,000-40,000 UNITS X 6
     Dates: start: 20021002, end: 20030813
  5. EXEMESTANE [Concomitant]
     Dosage: 25 MG X 7 TREATMENTS
     Dates: start: 20011124, end: 20011217
  6. GEMCITABINE [Concomitant]
     Dosage: 870-1043 MG OVER 30 MINUTES
     Dates: start: 20020814, end: 20030702
  7. PREDNISONE TAB [Concomitant]
     Dosage: 5-50MG X 19 TREATMENTS
     Dates: start: 20011215, end: 20030814
  8. DEXAMETHASONE [Concomitant]
     Dosage: 20MG X 33 TREATMENTS
     Dates: start: 20020814, end: 20030702
  9. PROCHLORPERAZINE [Concomitant]
     Dosage: 10 MG, ONCE/SINGLE
     Dates: start: 20030813, end: 20030813

REACTIONS (2)
  - JAW DISORDER [None]
  - OSTEONECROSIS [None]
